FAERS Safety Report 6043927-X (Version None)
Quarter: 2009Q1

REPORT INFORMATION
  Report Type: 
  Country: None (occurrence: None)
  Receive Date: 20090120
  Receipt Date: 20090120
  Transmission Date: 20090719
  Serious: Yes (Hospitalization)
  Sender: FDA-Public Use
  Company Number: PHHO2005YU20936

PATIENT

DRUGS (7)
  1. PLACEBO COMP-PLA+ [Suspect]
     Indication: PSEUDOMONAS INFECTION
     Dosage: UNK
     Dates: start: 20051124
  2. URSO FALK [Concomitant]
     Dates: start: 20040501
  3. PULMOZYME [Concomitant]
     Dates: start: 20050301
  4. CREON [Concomitant]
     Dates: start: 19871201
  5. VITAMIN E [Concomitant]
     Dates: start: 20000101
  6. VITAMIN K [Concomitant]
     Dates: start: 20030101
  7. INSULIN [Concomitant]
     Dates: start: 20040301

REACTIONS (9)
  - COUGH [None]
  - CYANOSIS [None]
  - CYSTIC FIBROSIS [None]
  - DYSPNOEA [None]
  - FORCED EXPIRATORY VOLUME DECREASED [None]
  - HYPOXIA [None]
  - LUNG INFECTION [None]
  - PRODUCTIVE COUGH [None]
  - PULMONARY FUNCTION TEST DECREASED [None]
